FAERS Safety Report 5291147-9 (Version None)
Quarter: 2007Q2

REPORT INFORMATION
  Report Type: 
  Country: None (occurrence: None)
  Receive Date: 20070409
  Receipt Date: 20070402
  Transmission Date: 20071010
  Serious: Yes (Hospitalization)
  Sender: FDA-Public Use
  Company Number: US-AVENTIS-200616679US

PATIENT
  Sex: Female

DRUGS (2)
  1. LANTUS [Suspect]
     Dosage: DOSE: UNK
  2. OPTICLIK (INSULIN INJECTION PEN) [Suspect]

REACTIONS (1)
  - HOSPITALISATION [None]
